FAERS Safety Report 25717724 (Version 1)
Quarter: 2025Q3

REPORT INFORMATION
  Report Type: Spontaneous
  Country: US (occurrence: US)
  Receive Date: 20250822
  Receipt Date: 20250822
  Transmission Date: 20251020
  Serious: Yes (Hospitalization)
  Sender: ANI
  Company Number: US-ANIPHARMA-2025-US-038284

PATIENT
  Age: 69 Year
  Sex: Female
  Weight: 89.36 kg

DRUGS (19)
  1. CORTICOTROPIN [Suspect]
     Active Substance: CORTICOTROPIN
     Indication: Rheumatoid arthritis
     Route: 058
     Dates: start: 202310
  2. POTASSIUM [Concomitant]
     Active Substance: POTASSIUM
  3. ASPIRIN [Concomitant]
     Active Substance: ASPIRIN
  4. LASIX [Concomitant]
     Active Substance: FUROSEMIDE
  5. PROTONIX [Concomitant]
     Active Substance: PANTOPRAZOLE SODIUM
  6. ALBUTEROL [Concomitant]
     Active Substance: ALBUTEROL
  7. pain cream, unspecified [Concomitant]
  8. FLEXERIL [Concomitant]
     Active Substance: CYCLOBENZAPRINE HYDROCHLORIDE
  9. AMITRIPTYLINE [Concomitant]
     Active Substance: AMITRIPTYLINE
  10. METOPROLOL [Concomitant]
     Active Substance: METOPROLOL
  11. COLCHICINE [Concomitant]
     Active Substance: COLCHICINE
  12. LISINOPRIL [Concomitant]
     Active Substance: LISINOPRIL
  13. SYNTHROID [Concomitant]
     Active Substance: LEVOTHYROXINE SODIUM
  14. METHOTREXATE [Concomitant]
     Active Substance: METHOTREXATE
  15. FOLIC ACID [Concomitant]
     Active Substance: FOLIC ACID
  16. PREDNISONE [Concomitant]
     Active Substance: PREDNISONE
  17. REPATHA [Concomitant]
     Active Substance: EVOLOCUMAB
  18. Orencia infusion [Concomitant]
  19. KRYSTEXXA [Concomitant]
     Active Substance: PEGLOTICASE

REACTIONS (8)
  - Flank pain [Not Recovered/Not Resolved]
  - Pancreatic cyst [Recovered/Resolved]
  - Breast pain [Unknown]
  - Neoplasm [Unknown]
  - Contraindicated product administered [Not Recovered/Not Resolved]
  - Haemorrhage [Recovered/Resolved]
  - Capillary disorder [Recovered/Resolved]
  - Pain [Unknown]

NARRATIVE: CASE EVENT DATE: 20250401
